FAERS Safety Report 6317612-0 (Version None)
Quarter: 2009Q3

REPORT INFORMATION
  Report Type: 
  Country: None (occurrence: None)
  Receive Date: 20090821
  Receipt Date: 20090817
  Transmission Date: 20100115
  Serious: Yes (Other)
  Sender: FDA-Public Use
  Company Number: GB-BRISTOL-MYERS SQUIBB COMPANY-14746515

PATIENT
  Age: 62 Year
  Sex: Male

DRUGS (1)
  1. APROVEL [Suspect]
     Indication: BLOOD PRESSURE

REACTIONS (1)
  - PHARYNGEAL MASS [None]
